FAERS Safety Report 12425894 (Version 2)
Quarter: 2016Q2

REPORT INFORMATION
  Report Type: Spontaneous
  Country: IT (occurrence: IT)
  Receive Date: 20160601
  Receipt Date: 20160603
  Transmission Date: 20160815
  Serious: Yes (Hospitalization)
  Sender: FDA-Public Use
  Company Number: IT-BAYER-2016-106327

PATIENT
  Age: 68 Year
  Sex: Male

DRUGS (1)
  1. CARDIOASPIRIN [Suspect]
     Active Substance: ASPIRIN
     Indication: THROMBOSIS PROPHYLAXIS
     Dosage: DAILY DOSE 100 MG
     Route: 048
     Dates: start: 20160101, end: 20160418

REACTIONS (3)
  - Duodenal ulcer [Unknown]
  - Presyncope [Unknown]
  - Anaemia [Unknown]

NARRATIVE: CASE EVENT DATE: 20160418
